FAERS Safety Report 13252400 (Version 2)
Quarter: 2017Q1

REPORT INFORMATION
  Report Type: Spontaneous
  Country: JP (occurrence: JP)
  Receive Date: 20170220
  Receipt Date: 20170227
  Transmission Date: 20170428
  Serious: Yes (Hospitalization)
  Sender: FDA-Public Use
  Company Number: JP-BIOCRYST PHARMACEUTICALS, INC.-2017BCR00038

PATIENT
  Age: 75 Year
  Sex: Male

DRUGS (2)
  1. CATACLOT (OZAGREL SODIUM) [Suspect]
     Active Substance: OZAGREL SODIUM
     Indication: CEREBRAL INFARCTION
     Dosage: 40 MG, 1X/DAY
     Route: 042
     Dates: start: 20170203, end: 20170204
  2. RAPIACTA [Suspect]
     Active Substance: PERAMIVIR
     Indication: INFLUENZA
     Dosage: 300 MG, UNK
     Route: 042
     Dates: start: 20170204, end: 20170204

REACTIONS (2)
  - Seizure [Recovering/Resolving]
  - Abnormal behaviour [Recovering/Resolving]

NARRATIVE: CASE EVENT DATE: 20170204
